FAERS Safety Report 6180205-2 (Version None)
Quarter: 2009Q2

REPORT INFORMATION
  Report Type: 
  Country: None (occurrence: None)
  Receive Date: 20090505
  Receipt Date: 20090501
  Transmission Date: 20091009
  Serious: Yes (Other)
  Sender: FDA-Public Use
  Company Number: FR-RB-014417-09

PATIENT
  Sex: Female

DRUGS (3)
  1. SUBUTEX [Suspect]
     Indication: DRUG USE FOR UNKNOWN INDICATION
     Route: 042
     Dates: start: 20060101
  2. SUBUTEX [Suspect]
     Route: 042
  3. SUBUTEX [Suspect]
     Route: 042
     Dates: start: 20090401

REACTIONS (5)
  - INCORRECT ROUTE OF DRUG ADMINISTRATION [None]
  - INJECTION SITE ABSCESS [None]
  - INJECTION SITE OEDEMA [None]
  - SUBSTANCE ABUSE [None]
  - WRONG TECHNIQUE IN DRUG USAGE PROCESS [None]
